FAERS Safety Report 10045478 (Version 2)
Quarter: 2014Q2

REPORT INFORMATION
  Report Type: Report from Study
  Country: US (occurrence: US)
  Receive Date: 20140328
  Receipt Date: 20140417
  Transmission Date: 20141212
  Serious: Yes (Other)
  Sender: FDA-Public Use
  Company Number: US-ASTRAZENECA-2014SE20694

PATIENT
  Age: 57 Year
  Sex: Female
  Weight: 68 kg

DRUGS (6)
  1. SYMBICORT [Suspect]
     Indication: ASTHMA
     Dosage: ONCE A DAY AS NEEDED
     Route: 055
  2. SYMBICORT [Suspect]
     Indication: ASTHMA
     Dosage: 320MCG BID
     Route: 055
     Dates: start: 201402, end: 201403
  3. PULMICORT FLEXHALER [Suspect]
     Route: 055
  4. ATIVAN [Concomitant]
     Indication: ANXIETY
     Route: 048
     Dates: start: 201402
  5. PROAIR [Concomitant]
     Indication: RESPIRATORY THERAPY
     Dosage: 90MCG X2 PUFFS PRN
     Route: 055
     Dates: start: 2010
  6. HYDROCODONE [Concomitant]
     Indication: NEURALGIA
     Route: 048
     Dates: start: 2011

REACTIONS (6)
  - Confusional state [Recovering/Resolving]
  - Anxiety [Recovering/Resolving]
  - Dizziness [Recovering/Resolving]
  - Panic attack [Unknown]
  - Intentional product misuse [Unknown]
  - Drug ineffective [Unknown]
